FAERS Safety Report 6919220-7 (Version None)
Quarter: 2010Q3

REPORT INFORMATION
  Report Type: 
  Country: None (occurrence: None)
  Receive Date: 20100811
  Receipt Date: 20100730
  Transmission Date: 20110219
  Serious: Yes (Other)
  Sender: FDA-Public Use
  Company Number: JP-ROCHE-719491

PATIENT
  Sex: Female

DRUGS (15)
  1. TOCILIZUMAB [Suspect]
     Indication: RHEUMATOID ARTHRITIS
     Route: 041
     Dates: start: 20090926, end: 20090926
  2. TOCILIZUMAB [Suspect]
     Route: 041
     Dates: start: 20091024, end: 20091024
  3. TOCILIZUMAB [Suspect]
     Route: 041
     Dates: start: 20091121, end: 20091121
  4. TOCILIZUMAB [Suspect]
     Route: 041
     Dates: start: 20091219, end: 20091219
  5. TOCILIZUMAB [Suspect]
     Route: 041
     Dates: start: 20100116, end: 20100116
  6. TOCILIZUMAB [Suspect]
     Route: 041
     Dates: start: 20100213, end: 20100213
  7. TOCILIZUMAB [Suspect]
     Route: 041
     Dates: start: 20100313
  8. PREDONINE [Concomitant]
     Route: 048
     Dates: start: 20090908, end: 20090925
  9. PREDONINE [Concomitant]
     Route: 048
     Dates: start: 20090926, end: 20091023
  10. PREDONINE [Concomitant]
     Route: 048
     Dates: start: 20091024, end: 20091120
  11. PREDONINE [Concomitant]
     Route: 048
     Dates: start: 20091121, end: 20091218
  12. PREDONINE [Concomitant]
     Route: 048
     Dates: start: 20091219, end: 20100115
  13. PREDNISOLONE [Concomitant]
     Dosage: DOSE FORM: PERORAL AGENT
     Route: 048
     Dates: start: 20100116, end: 20100212
  14. PREDNISOLONE [Concomitant]
     Route: 048
     Dates: start: 20100213, end: 20100312
  15. PREDNISOLONE [Concomitant]
     Route: 048
     Dates: start: 20100313

REACTIONS (1)
  - LYMPHOCYTE COUNT DECREASED [None]
